FAERS Safety Report 20170942 (Version 1)
Quarter: 2021Q4

REPORT INFORMATION
  Report Type: Spontaneous
  Country: CN (occurrence: None)
  Receive Date: 20211210
  Receipt Date: 20211210
  Transmission Date: 20220303
  Serious: Yes (Hospitalization)
  Sender: FDA-Public Use
  Company Number: 2021A856979

PATIENT
  Age: 3817 Week
  Sex: Female

DRUGS (1)
  1. OSIMERTINIB MESYLATE [Suspect]
     Active Substance: OSIMERTINIB MESYLATE
     Indication: Neoplasm
     Route: 048
     Dates: start: 20211021, end: 20211123

REACTIONS (5)
  - Drug-induced liver injury [Recovering/Resolving]
  - Dyspnoea [Unknown]
  - Productive cough [Unknown]
  - Haemoptysis [Unknown]
  - Haematochezia [Unknown]

NARRATIVE: CASE EVENT DATE: 20211123
